FAERS Safety Report 24580536 (Version 1)
Quarter: 2024Q4

REPORT INFORMATION
  Report Type: Spontaneous
  Country: US (occurrence: None)
  Receive Date: 20241104
  Receipt Date: 20241104
  Transmission Date: 20250115
  Serious: Yes (Life-Threatening, Disabling)
  Sender: Public
  Company Number: None

PATIENT
  Age: 58 Year
  Sex: Male

DRUGS (2)
  1. MULTIHANCE [Suspect]
     Active Substance: GADOBENATE DIMEGLUMINE
     Dates: start: 20240715, end: 20240715
  2. EPINEPHRINE [Suspect]
     Active Substance: EPINEPHRINE

REACTIONS (8)
  - Therapy cessation [None]
  - Ventricular fibrillation [None]
  - Contrast media allergy [None]
  - Jaw disorder [None]
  - Dyspnoea [None]
  - Unresponsive to stimuli [None]
  - Seizure [None]
  - Cerebrovascular accident [None]

NARRATIVE: CASE EVENT DATE: 20240715
